FAERS Safety Report 17075536 (Version 1)
Quarter: 2019Q4

REPORT INFORMATION
  Report Type: Spontaneous
  Country: US (occurrence: US)
  Receive Date: 20191125
  Receipt Date: 20191125
  Transmission Date: 20200122
  Serious: Yes (Death, Hospitalization)
  Sender: FDA-Public Use
  Company Number: None

PATIENT
  Age: 63 Year
  Sex: Male
  Weight: 87.3 kg

DRUGS (3)
  1. ATORVASTATIN 80MG [Concomitant]
     Active Substance: ATORVASTATIN
     Dates: start: 20171216
  2. BRILINTA [Suspect]
     Active Substance: TICAGRELOR
     Indication: ANTICOAGULANT THERAPY
     Route: 048
     Dates: start: 20171217
  3. GABAPENTIN 100MG THREE TIMES DAILY [Concomitant]
     Dates: start: 20171217

REACTIONS (2)
  - Thrombectomy [None]
  - Arterial occlusive disease [None]

NARRATIVE: CASE EVENT DATE: 20171221
